FAERS Safety Report 8373024-X (Version None)
Quarter: 2012Q2

REPORT INFORMATION
  Report Type: 
  Country: None (occurrence: None)
  Receive Date: 20120521
  Receipt Date: 20120516
  Transmission Date: 20120825
  Serious: Yes (Hospitalization)
  Sender: FDA-Public Use
  Company Number: US-B.I. PHARMACEUTICALS,INC./RIDGEFIELD-2012-BP-10940BP

PATIENT
  Sex: Female

DRUGS (15)
  1. CELEXA [Concomitant]
  2. PLAVIX [Concomitant]
     Dosage: 75 MG
     Route: 048
  3. PRILOSEC [Concomitant]
     Indication: GASTROOESOPHAGEAL REFLUX DISEASE
  4. METOPROLOL TARTRATE [Concomitant]
     Indication: HYPERTENSION
     Dosage: 50 MG
     Route: 048
  5. LEVOXYL [Concomitant]
     Indication: HYPOTHYROIDISM
     Dosage: 0.05 MG
     Route: 048
  6. LIPITOR [Concomitant]
     Indication: BLOOD CHOLESTEROL INCREASED
     Dosage: 10 MG
     Route: 048
  7. LISINOPRIL [Concomitant]
     Indication: HYPERTENSION
     Dosage: 2.5 MG
     Route: 048
  8. NORCO [Concomitant]
     Indication: PAIN
  9. COMBIVENT [Suspect]
     Indication: CHRONIC OBSTRUCTIVE PULMONARY DISEASE
     Dosage: 8 PUF
     Route: 055
     Dates: start: 20060101
  10. SYMBICORT [Concomitant]
     Indication: CHRONIC OBSTRUCTIVE PULMONARY DISEASE
  11. THEOPHYLLINE [Concomitant]
     Indication: CHRONIC OBSTRUCTIVE PULMONARY DISEASE
     Dosage: 600 MG
     Route: 048
  12. NORVASC [Concomitant]
     Indication: HYPERTENSION
     Dosage: 10 MG
     Route: 048
  13. DIPHENOXYLATE HCL + ATROPINE SULFATE [Concomitant]
  14. FLEXERIL [Concomitant]
     Indication: PAIN
     Dosage: 5 MG
     Route: 048
  15. XANAX [Concomitant]
     Indication: ANXIETY
     Route: 048

REACTIONS (4)
  - MYOCARDIAL INFARCTION [None]
  - RIB FRACTURE [None]
  - THROAT IRRITATION [None]
  - FALL [None]
